FAERS Safety Report 14221093 (Version 1)
Quarter: 2017Q4

REPORT INFORMATION
  Report Type: Spontaneous
  Country: US (occurrence: US)
  Receive Date: 20171124
  Receipt Date: 20171124
  Transmission Date: 20180321
  Serious: No
  Sender: FDA-Public Use
  Company Number: US-ELI_LILLY_AND_COMPANY-US201711004670

PATIENT
  Age: 37 Year
  Sex: Female

DRUGS (1)
  1. HUMATROPE [Suspect]
     Active Substance: SOMATROPIN
     Indication: HYPOPITUITARISM
     Dosage: UNK UNK, UNKNOWN
     Route: 065
     Dates: start: 20171108

REACTIONS (7)
  - Feeling abnormal [Unknown]
  - Abscess [Unknown]
  - Anxiety [Unknown]
  - Panic disorder [Unknown]
  - Pain [Unknown]
  - Paraesthesia [Unknown]
  - Accidental overdose [Unknown]

NARRATIVE: CASE EVENT DATE: 201711
